FAERS Safety Report 5132367-3 (Version None)
Quarter: 2006Q4

REPORT INFORMATION
  Report Type: 
  Country: None (occurrence: None)
  Receive Date: 20061023
  Receipt Date: 20061009
  Transmission Date: 20070319
  Serious: Yes (Other)
  Sender: FDA-Public Use
  Company Number: GR-BRISTOL-MYERS SQUIBB COMPANY-13538871

PATIENT
  Age: 44 Year
  Sex: Female

DRUGS (3)
  1. CARBOPLATIN [Suspect]
     Indication: OVARIAN CANCER
     Dates: end: 20031101
  2. PACLITAXEL [Suspect]
     Indication: OVARIAN CANCER
  3. DOXORUBICIN HCL [Suspect]
     Indication: OVARIAN CANCER
     Dates: end: 20031101

REACTIONS (3)
  - ASCITES [None]
  - HAEMATOTOXICITY [None]
  - MALIGNANT NEOPLASM PROGRESSION [None]
